FAERS Safety Report 11979672 (Version 8)
Quarter: 2018Q2

REPORT INFORMATION
  Report Type: Report from Study
  Country: US (occurrence: US)
  Receive Date: 20160129
  Receipt Date: 20180425
  Transmission Date: 20180711
  Serious: Yes (Other)
  Sender: FDA-Public Use
  Company Number: PHHO2015US015851

PATIENT
  Age: 53 Year
  Sex: Male
  Weight: 121.6 kg

DRUGS (2)
  1. PANITUMUMAB [Suspect]
     Active Substance: PANITUMUMAB
     Indication: COLORECTAL CANCER
     Dosage: UNK, EVERY 14 DAYS, CYCLIC
     Route: 042
     Dates: start: 20150723
  2. GSK1120212 [Suspect]
     Active Substance: TRAMETINIB
     Indication: COLORECTAL CANCER
     Dosage: UNK, QD
     Route: 048
     Dates: start: 20150723, end: 20150820

REACTIONS (2)
  - Ejection fraction decreased [Recovered/Resolved]
  - Acute kidney injury [Not Recovered/Not Resolved]

NARRATIVE: CASE EVENT DATE: 20150903
